FAERS Safety Report 23234525 (Version 1)
Quarter: 2023Q4

REPORT INFORMATION
  Report Type: Spontaneous
  Country: IN (occurrence: IN)
  Receive Date: 20231128
  Receipt Date: 20231128
  Transmission Date: 20240110
  Serious: Yes (Hospitalization, Other)
  Sender: FDA-Public Use
  Company Number: IN-MEITHEAL-2023MPLIT00177

PATIENT
  Age: 49 Year
  Sex: Male

DRUGS (2)
  1. GEMCITABINE [Suspect]
     Active Substance: GEMCITABINE
     Indication: Pancreatic carcinoma
     Dosage: ON DAYS 1, 8,15 OF A 28 DAY CYCLE
     Route: 065
  2. PACLITAXEL [Concomitant]
     Active Substance: PACLITAXEL
     Dosage: ON DAYS 1, 8,15 OF A 28 DAY CYCLE
     Route: 065

REACTIONS (1)
  - Renal-limited thrombotic microangiopathy [Recovering/Resolving]
